FAERS Safety Report 4447933-8 (Version None)
Quarter: 2004Q3

REPORT INFORMATION
  Report Type: 
  Country: None (occurrence: None)
  Receive Date: 20040820
  Receipt Date: 20040128
  Transmission Date: 20050211
  Serious: Yes (Hospitalization)
  Sender: FDA-Public Use
  Company Number: K200400137

PATIENT
  Age: 77 Year
  Sex: Female
  Weight: 72.6 kg

DRUGS (2)
  1. DELESTROGEN (ESTRADIOL VALERATE)  INJECTION 40MG/ML [Suspect]
     Indication: FLUSHING
     Dosage: 20 MG/ML, QMONTH, INTRAMUSCULAR
     Route: 030
     Dates: start: 19650101, end: 20030801
  2. ASPIRIN [Concomitant]

REACTIONS (2)
  - BALANCE DISORDER [None]
  - CEREBROVASCULAR ACCIDENT [None]
